FAERS Safety Report 4283542-1 (Version None)
Quarter: 2004Q1

REPORT INFORMATION
  Report Type: 
  Country: None (occurrence: None)
  Receive Date: 20040121
  Receipt Date: 20030410
  Transmission Date: 20041129
  Serious: Yes (Other)
  Sender: FDA-Public Use
  Company Number: A03200300794

PATIENT
  Age: 70 Year
  Sex: Male
  Weight: 70.3075 kg

DRUGS (5)
  1. PLAVIX [Suspect]
     Indication: ATHEROSCLEROSIS
     Dosage: 75 MG QD ORAL
     Route: 048
     Dates: start: 20020601
  2. PLAVIX [Suspect]
     Indication: PERIPHERAL VASCULAR DISORDER
     Dosage: 75 MG QD ORAL
     Route: 048
     Dates: start: 20020601
  3. METOPROLOL SUCCINATE [Concomitant]
  4. ACETYLSALICYLIC ACID SRT [Concomitant]
  5. GLIMEPIRIDE [Concomitant]

REACTIONS (1)
  - CEREBROVASCULAR ACCIDENT [None]
